FAERS Safety Report 18867828 (Version 4)
Quarter: 2022Q3

REPORT INFORMATION
  Report Type: Spontaneous
  Country: PT (occurrence: PT)
  Receive Date: 20210209
  Receipt Date: 20220713
  Transmission Date: 20221027
  Serious: Yes (Other)
  Sender: FDA-Public Use
  Company Number: PT-GSKCCFEMEA-CASE-01138832_AE-40200

PATIENT

DRUGS (1)
  1. FLUTICASONE FUROATE [Suspect]
     Active Substance: FLUTICASONE FUROATE
     Indication: Rhinitis allergic
     Dosage: 2 PUFF(S), QD 2 INHALATIONS EACH NOSTRIL
     Dates: start: 20200922, end: 202012

REACTIONS (23)
  - Pneumonia [Not Recovered/Not Resolved]
  - Chest pain [Not Recovered/Not Resolved]
  - Otitis media [Not Recovered/Not Resolved]
  - Wheezing [Not Recovered/Not Resolved]
  - Ageusia [Not Recovered/Not Resolved]
  - Dizziness [Not Recovered/Not Resolved]
  - Rash [Not Recovered/Not Resolved]
  - Anosmia [Not Recovered/Not Resolved]
  - Asthenia [Not Recovered/Not Resolved]
  - Erythema [Not Recovered/Not Resolved]
  - COVID-19 [Not Recovered/Not Resolved]
  - Rhinorrhoea [Not Recovered/Not Resolved]
  - Tinnitus [Not Recovered/Not Resolved]
  - Depression [Unknown]
  - Post-traumatic stress disorder [Unknown]
  - Occipital neuralgia [Unknown]
  - Feeling cold [Unknown]
  - Cold sweat [Unknown]
  - Otorrhoea [Unknown]
  - Therapy cessation [Unknown]
  - Nasal irrigation [Unknown]
  - Secretion discharge [Unknown]
  - Drug ineffective [Not Recovered/Not Resolved]

NARRATIVE: CASE EVENT DATE: 20200922
